FAERS Safety Report 19261505 (Version 1)
Quarter: 2021Q2

REPORT INFORMATION
  Report Type: Report from Study
  Country: CN (occurrence: CN)
  Receive Date: 20210515
  Receipt Date: 20210515
  Transmission Date: 20210717
  Serious: Yes (Life-Threatening)
  Sender: FDA-Public Use
  Company Number: NVSC2021CN108261

PATIENT
  Age: 60 Year
  Sex: Female

DRUGS (6)
  1. MONTMORILLONITE [Concomitant]
     Active Substance: MONTMORILLONITE
     Indication: DIARRHOEA
     Dosage: UNK
     Route: 065
     Dates: start: 20180220, end: 20180222
  2. COENZYME Q10 [Concomitant]
     Active Substance: DIETARY SUPPLEMENT\UBIDECARENONE
     Indication: PRODUCT USED FOR UNKNOWN INDICATION
     Dosage: UNK
     Route: 065
     Dates: start: 201712
  3. CAPECITABINE. [Suspect]
     Active Substance: CAPECITABINE
     Dosage: 1450 MG
     Route: 048
     Dates: end: 20180220
  4. CAPECITABINE. [Suspect]
     Active Substance: CAPECITABINE
     Dosage: REDUCED DOSE
     Route: 048
  5. TYKERB [Suspect]
     Active Substance: LAPATINIB DITOSYLATE
     Indication: HER2 POSITIVE BREAST CANCER
     Dosage: 1250 MG, QD ONCE PER DAY OF EACH 21?DAY CYCLE
     Route: 048
     Dates: start: 20180207, end: 20180228
  6. CAPECITABINE. [Suspect]
     Active Substance: CAPECITABINE
     Indication: HER2 POSITIVE BREAST CANCER
     Dosage: 1000 MG/M2, BID (ON DAYS 1?14 OF EACH 21?DAY CYCLE)
     Route: 048
     Dates: start: 20180207

REACTIONS (1)
  - Hypokalaemia [Recovered/Resolved]

NARRATIVE: CASE EVENT DATE: 20180228
